FAERS Safety Report 4286970-3 (Version None)
Quarter: 2004Q1

REPORT INFORMATION
  Report Type: 
  Country: None (occurrence: None)
  Receive Date: 20040205
  Receipt Date: 20040120
  Transmission Date: 20041129
  Serious: Yes (Hospitalization)
  Sender: FDA-Public Use
  Company Number: 191012

PATIENT
  Age: 64 Year
  Sex: Female
  Weight: 56.6996 kg

DRUGS (5)
  1. AVONEX [Suspect]
     Indication: MULTIPLE SCLEROSIS
     Dosage: 30 MCG QW IM
     Route: 030
     Dates: start: 19990101, end: 20031215
  2. AVONEX [Suspect]
     Indication: MULTIPLE SCLEROSIS
     Dosage: 30 MCG QW IM
     Route: 030
     Dates: start: 20031222
  3. SYNTHROID [Concomitant]
  4. VITAMINS NOS [Concomitant]
  5. CALCIUM [Concomitant]

REACTIONS (5)
  - ASTHENIA [None]
  - BREAST CANCER METASTATIC [None]
  - INFLUENZA LIKE ILLNESS [None]
  - METASTASES TO LYMPH NODES [None]
  - OSTEOPOROSIS [None]
